FAERS Safety Report 10007922 (Version 1)
Quarter: 2014Q1

REPORT INFORMATION
  Report Type: Report from Study
  Country: US (occurrence: US)
  Receive Date: 20140313
  Receipt Date: 20140313
  Transmission Date: 20141002
  Serious: Yes (Other)
  Sender: FDA-Public Use
  Company Number: US-BRISTOL-MYERS SQUIBB COMPANY-20371779

PATIENT
  Sex: Female

DRUGS (2)
  1. ORENCIA [Suspect]
  2. METHOTREXATE [Concomitant]

REACTIONS (3)
  - Granulomatosis with polyangiitis [Unknown]
  - Immunodeficiency [Unknown]
  - Malaise [Unknown]
